FAERS Safety Report 4824163-9 (Version None)
Quarter: 2005Q4

REPORT INFORMATION
  Report Type: 
  Country: None (occurrence: None)
  Receive Date: 20051108
  Receipt Date: 20051025
  Transmission Date: 20060501
  Serious: Yes (Other)
  Sender: FDA-Public Use
  Company Number: USA0510111749

PATIENT
  Age: 29 Year
  Sex: Female
  Weight: 81 kg

DRUGS (5)
  1. HUMALOG MIX 75/25 [Suspect]
     Indication: DIABETES MELLITUS
     Dates: start: 19960101
  2. HUMULIN R [Suspect]
     Indication: DIABETES MELLITUS
     Dosage: 28 U
  3. HUMULIN N [Suspect]
     Indication: DIABETES MELLITUS
     Dosage: 34 U
  4. REGULAR PURIFIED PORK INSULIN [Suspect]
     Indication: DIABETES MELLITUS
     Dosage: 37 U
  5. NPH PURIFIED PORK ISOPHANE INSULIN [Suspect]
     Indication: DIABETES MELLITUS
     Dosage: 55 U

REACTIONS (10)
  - BLINDNESS UNILATERAL [None]
  - BLOOD GLUCOSE FLUCTUATION [None]
  - DIPLOPIA [None]
  - DRUG EXPOSURE DURING PREGNANCY [None]
  - EYE HAEMORRHAGE [None]
  - HEADACHE [None]
  - MIGRAINE [None]
  - SENSATION OF HEAVINESS [None]
  - SUICIDAL IDEATION [None]
  - VISION BLURRED [None]
